FAERS Safety Report 17469331 (Version 3)
Quarter: 2020Q1

REPORT INFORMATION
  Report Type: Report from Study
  Country: CH (occurrence: CH)
  Receive Date: 20200227
  Receipt Date: 20200319
  Transmission Date: 20200409
  Serious: Yes (Other)
  Sender: FDA-Public Use
  Company Number: CH-TAKEDA-2020TUS011835

PATIENT
  Age: 53 Year
  Sex: Female

DRUGS (8)
  1. VENLAX                             /01233801/ [Concomitant]
     Dosage: 75 MILLIGRAM, QD
     Route: 065
     Dates: start: 20200125, end: 20200127
  2. VENLAX                             /01233801/ [Concomitant]
     Dosage: 37.5 MILLIGRAM, QD
     Route: 065
     Dates: start: 20200128, end: 20200218
  3. VORTIOXETINE. [Suspect]
     Active Substance: VORTIOXETINE
     Dosage: 10 MILLIGRAM, QD
     Route: 065
     Dates: end: 20200213
  4. VENLAX                             /01233801/ [Concomitant]
     Dosage: 225 MILLIGRAM, QD
     Route: 065
  5. VORTIOXETINE. [Suspect]
     Active Substance: VORTIOXETINE
     Indication: DEPRESSION
     Dosage: 5 MILLIGRAM, QD
     Route: 065
     Dates: start: 20200128
  6. RISPERDAL [Concomitant]
     Active Substance: RISPERIDONE
     Indication: OBSESSIVE THOUGHTS
     Dosage: 1 MILLIGRAM
     Route: 065
     Dates: start: 20181011
  7. VENLAX                             /01233801/ [Concomitant]
     Indication: DEPRESSION
     Dosage: 37.5 MILLIGRAM, QD
     Route: 065
     Dates: start: 20191213
  8. VENLAX                             /01233801/ [Concomitant]
     Dosage: 150 MILLIGRAM, QD
     Route: 065
     Dates: start: 20200122, end: 20200124

REACTIONS (4)
  - Musculoskeletal stiffness [Recovered/Resolved]
  - Muscle spasms [Recovered/Resolved]
  - Headache [Recovered/Resolved]
  - Irritability [Recovered/Resolved]

NARRATIVE: CASE EVENT DATE: 20200129
